FAERS Safety Report 19282676 (Version 2)
Quarter: 2021Q4

REPORT INFORMATION
  Report Type: Spontaneous
  Country: US (occurrence: US)
  Receive Date: 20210520
  Receipt Date: 20211118
  Transmission Date: 20220303
  Serious: Yes (Other)
  Sender: FDA-Public Use
  Company Number: US-GLAXOSMITHKLINE-US2021GSK106857

PATIENT
  Sex: Male

DRUGS (10)
  1. ZANTAC [Suspect]
     Active Substance: RANITIDINE HYDROCHLORIDE
     Indication: Dyspepsia
     Dosage: UNK UNK, QD
     Route: 065
     Dates: start: 199501, end: 201512
  2. ZANTAC [Suspect]
     Active Substance: RANITIDINE HYDROCHLORIDE
     Indication: Abdominal discomfort
     Dosage: 75 MG, QD
     Route: 065
     Dates: start: 198401, end: 200501
  3. ZANTAC [Suspect]
     Active Substance: RANITIDINE HYDROCHLORIDE
     Indication: Colitis ulcerative
  4. ZANTAC [Suspect]
     Active Substance: RANITIDINE HYDROCHLORIDE
     Indication: Dyspepsia
     Dosage: UNK UNK, QD
     Route: 065
     Dates: start: 199501, end: 201512
  5. ZANTAC [Suspect]
     Active Substance: RANITIDINE HYDROCHLORIDE
     Indication: Abdominal discomfort
     Dosage: 75 MG, QD
     Route: 065
     Dates: start: 198401, end: 200501
  6. ZANTAC [Suspect]
     Active Substance: RANITIDINE HYDROCHLORIDE
     Indication: Colitis ulcerative
  7. RANITIDINE [Suspect]
     Active Substance: RANITIDINE
     Indication: Abdominal discomfort
     Dosage: UNKNOWN AT THIS TIME, QD
     Route: 065
     Dates: start: 198401, end: 200501
  8. RANITIDINE [Suspect]
     Active Substance: RANITIDINE
     Indication: Colitis ulcerative
  9. RANITIDINE [Suspect]
     Active Substance: RANITIDINE
     Indication: Abdominal discomfort
     Dosage: UNKNOWN AT THIS TIME, QD
     Route: 065
     Dates: start: 198401, end: 200501
  10. RANITIDINE [Suspect]
     Active Substance: RANITIDINE
     Indication: Colitis ulcerative

REACTIONS (3)
  - Renal cancer [Unknown]
  - Pancreatic carcinoma [Unknown]
  - Prostate cancer [Unknown]
